FAERS Safety Report 9224561 (Version 3)
Quarter: 2013Q4

REPORT INFORMATION
  Report Type: Report from Study
  Country: US (occurrence: US)
  Receive Date: 20130411
  Receipt Date: 20131011
  Transmission Date: 20140711
  Serious: Yes (Death, Hospitalization)
  Sender: FDA-Public Use
  Company Number: US-BAYER-2013-034599

PATIENT
  Age: 63 Year
  Sex: Male

DRUGS (9)
  1. NEXAVAR [Suspect]
     Indication: HEPATIC CANCER
     Route: 048
  2. NEXAVAR [Suspect]
     Indication: HEPATIC CANCER
     Route: 048
  3. NEXAVAR [Suspect]
     Indication: HEPATIC CANCER
     Dosage: 600 MG DAILY ALTERNATING EVERY OTHER DAY WITH 400 MG DAILY
     Route: 048
  4. NEXAVAR [Suspect]
     Indication: HEPATIC CANCER
     Dosage: 600 MG, QD
     Route: 048
     Dates: start: 201303, end: 2013
  5. NEXAVAR [Suspect]
     Indication: HEPATIC CANCER
     Dosage: 3X200 MG/DAY
     Route: 048
     Dates: start: 20130307
  6. PRILOSEC [Concomitant]
  7. PROTONIX [Concomitant]
     Dosage: 40 MG, QD
  8. COZAAR [Concomitant]
     Dosage: 50 MG, QD
  9. COZAAR [Concomitant]
     Dosage: 100 MG, QD

REACTIONS (4)
  - Pancreatitis [None]
  - Myocardial infarction [None]
  - Atrioventricular block [None]
  - Death [Fatal]
